FAERS Safety Report 9261612 (Version 3)
Quarter: 2013Q3

REPORT INFORMATION
  Report Type: Spontaneous
  Country: JP (occurrence: JP)
  Receive Date: 20130429
  Receipt Date: 20130718
  Transmission Date: 20140515
  Serious: Yes (Hospitalization)
  Sender: FDA-Public Use
  Company Number: JP-ASTRAZENECA-2013SE05924

PATIENT
  Age: 20704 Day
  Sex: Male
  Weight: 49 kg

DRUGS (5)
  1. ZOLADEX [Suspect]
     Indication: BREAST CANCER
     Route: 058
     Dates: start: 20120913, end: 20121206
  2. TASUOMIN [Concomitant]
     Indication: BREAST CANCER
     Route: 048
     Dates: start: 20120816, end: 20130110
  3. TAKEPRON [Concomitant]
     Indication: GASTRITIS
     Route: 048
     Dates: start: 201208
  4. AVOLVE [Concomitant]
     Indication: BENIGN PROSTATIC HYPERPLASIA
     Route: 048
  5. TAMSULOSIN HYDROCHLORIDE [Concomitant]
     Indication: BENIGN PROSTATIC HYPERPLASIA
     Route: 048

REACTIONS (2)
  - Interstitial lung disease [Recovering/Resolving]
  - Malaise [Recovering/Resolving]
